FAERS Safety Report 9611522 (Version 2)
Quarter: 2013Q4

REPORT INFORMATION
  Report Type: Spontaneous
  Country: US (occurrence: US)
  Receive Date: 20131010
  Receipt Date: 20131018
  Transmission Date: 20140711
  Serious: Yes (Other)
  Sender: FDA-Public Use
  Company Number: US-AMGEN-USASP2013070378

PATIENT
  Age: 47 Year
  Sex: Female

DRUGS (3)
  1. ENBREL [Suspect]
     Indication: PSORIASIS
     Dosage: 50 MG, 2 TIMES/WK
     Route: 065
     Dates: start: 1998, end: 20130901
  2. ENBREL [Suspect]
     Indication: PSORIATIC ARTHROPATHY
  3. HUMIRA [Suspect]
     Indication: PRODUCT USED FOR UNKNOWN INDICATION
     Dosage: UNK
     Route: 065

REACTIONS (15)
  - Fall [Unknown]
  - Limb injury [Not Recovered/Not Resolved]
  - Tendon injury [Not Recovered/Not Resolved]
  - Ligament injury [Not Recovered/Not Resolved]
  - Bone contusion [Unknown]
  - Skin haemorrhage [Not Recovered/Not Resolved]
  - Pain in extremity [Not Recovered/Not Resolved]
  - Oropharyngeal pain [Recovered/Resolved]
  - Pyrexia [Recovered/Resolved]
  - Therapeutic response decreased [Recovered/Resolved]
  - Mobility decreased [Unknown]
  - Impaired healing [Unknown]
  - Malaise [Recovered/Resolved]
  - Overweight [Unknown]
  - Injection site pain [Recovered/Resolved]
